FAERS Safety Report 6359241-9 (Version None)
Quarter: 2009Q3

REPORT INFORMATION
  Report Type: 
  Country: None (occurrence: None)
  Receive Date: 20090914
  Receipt Date: 20090831
  Transmission Date: 20100115
  Serious: No
  Sender: FDA-Public Use
  Company Number: FR-2009-1848

PATIENT
  Age: 62 Year
  Sex: Male

DRUGS (16)
  1. NAVELBINE [Suspect]
     Indication: LUNG NEOPLASM MALIGNANT
     Dosage: 60 MG IV
     Route: 042
     Dates: start: 20081114, end: 20081114
  2. NAVELBINE [Suspect]
     Indication: LUNG NEOPLASM MALIGNANT
     Dosage: 60 MG IV
     Route: 042
     Dates: start: 20081002
  3. NAVELBINE [Suspect]
     Indication: LUNG NEOPLASM MALIGNANT
     Dosage: 60 MG IV
     Route: 042
     Dates: start: 20081023
  4. NAVELBINE [Suspect]
     Indication: LUNG NEOPLASM MALIGNANT
     Dates: start: 20081114
  5. CISPLATIN [Suspect]
     Indication: LUNG NEOPLASM MALIGNANT
     Dosage: 120 MG IV
     Route: 042
     Dates: start: 20081114, end: 20081114
  6. EMEND [Suspect]
     Indication: DRUG USE FOR UNKNOWN INDICATION
     Dosage: 125 MG QD PO
     Route: 048
     Dates: start: 20081002
  7. ZOPHREN [Suspect]
     Indication: DRUG USE FOR UNKNOWN INDICATION
     Dosage: 8 MG BID IV
     Route: 042
     Dates: start: 20081002
  8. SOLU-MEDROL. MFR: NOT SPECIFIED [Suspect]
     Indication: DRUG USE FOR UNKNOWN INDICATION
     Dosage: 120 MG QD IV
     Route: 042
     Dates: start: 20081002
  9. STAGID [Concomitant]
  10. JANUVIA [Concomitant]
  11. XANAX [Concomitant]
  12. DILTIAZEM [Concomitant]
  13. HYTACAND [Concomitant]
  14. EZETROL [Concomitant]
  15. TAHOR [Concomitant]
  16. KARDEGIC [Concomitant]

REACTIONS (11)
  - BRADYCARDIA [None]
  - CHEST PAIN [None]
  - CIRCULATORY COLLAPSE [None]
  - ILEUS PARALYTIC [None]
  - NAUSEA [None]
  - NEUTROPENIA [None]
  - PANCREATITIS ACUTE [None]
  - RENAL FAILURE ACUTE [None]
  - SHOCK [None]
  - TREATMENT NONCOMPLIANCE [None]
  - WHITE BLOOD CELL COUNT DECREASED [None]
